FAERS Safety Report 12654680 (Version 1)
Quarter: 2016Q3

REPORT INFORMATION
  Report Type: Report from Study
  Country: CA (occurrence: CA)
  Receive Date: 20160816
  Receipt Date: 20160816
  Transmission Date: 20161109
  Serious: Yes (Hospitalization)
  Sender: FDA-Public Use
  Company Number: CA-JNJFOC-20160807032

PATIENT
  Age: 45 Year
  Sex: Male
  Weight: 125 kg

DRUGS (1)
  1. STELARA [Suspect]
     Active Substance: USTEKINUMAB
     Indication: PSORIATIC ARTHROPATHY
     Route: 058
     Dates: start: 20160804

REACTIONS (4)
  - Headache [Unknown]
  - Abdominal pain [Unknown]
  - Pyrexia [Unknown]
  - Abscess limb [Unknown]

NARRATIVE: CASE EVENT DATE: 20160805
